FAERS Safety Report 6289110-4 (Version None)
Quarter: 2009Q3

REPORT INFORMATION
  Report Type: 
  Country: None (occurrence: None)
  Receive Date: 20090729
  Receipt Date: 20090722
  Transmission Date: 20100115
  Serious: Yes (Death, Hospitalization, Congenital Anomaly)
  Sender: FDA-Public Use
  Company Number: FR-ASTRAZENECA-2009SE05569

PATIENT
  Age: 0 Week
  Sex: Female

DRUGS (3)
  1. RHINOCORT [Suspect]
     Dosage: ONE PUFF IN EACH NOSTRIL EVERY OTHER DAY
     Route: 064
     Dates: end: 20090214
  2. XYZAL [Suspect]
     Route: 064
     Dates: end: 20090214
  3. MUCORHINE [Suspect]
     Dosage: ONE PUFF IN EACH NOSTRIL EVERY OTHER DAY
     Route: 064
     Dates: end: 20090214

REACTIONS (1)
  - SPINA BIFIDA [None]
